FAERS Safety Report 6215607-9 (Version None)
Quarter: 2009Q2

REPORT INFORMATION
  Report Type: 
  Country: None (occurrence: None)
  Receive Date: 20090603
  Receipt Date: 20090603
  Transmission Date: 20091009
  Serious: Yes (Hospitalization)
  Sender: FDA-Public Use
  Company Number: None

PATIENT
  Age: 36 Year
  Sex: Female

DRUGS (6)
  1. CHANTIX [Suspect]
  2. PREDNISONE [Suspect]
  3. CARISOPRODOL [Suspect]
  4. SEROQUEL [Suspect]
  5. SPIRIVA [Suspect]
  6. IPRATROPIUM BROMIDE [Suspect]

REACTIONS (4)
  - ANXIETY [None]
  - BLADDER DISORDER [None]
  - PSYCHOTIC DISORDER [None]
  - URINARY RETENTION [None]
